FAERS Safety Report 15819451 (Version 1)
Quarter: 2019Q1

REPORT INFORMATION
  Report Type: Report from Study
  Country: IT (occurrence: IT)
  Receive Date: 20190114
  Receipt Date: 20190114
  Transmission Date: 20190417
  Serious: Yes (Hospitalization, Other)
  Sender: FDA-Public Use
  Company Number: IT-SUN PHARMACEUTICAL INDUSTRIES LTD-2018RR-195930

PATIENT
  Age: 55 Year
  Sex: Male

DRUGS (5)
  1. CAPECITABINE. [Suspect]
     Active Substance: CAPECITABINE
     Indication: COLORECTAL CANCER
     Dosage: FOR 2 WEEKS ON, 2 WEEKS OFF
     Route: 048
     Dates: start: 20180704, end: 20180825
  2. TEMOZOLOMIDE SUN [Suspect]
     Active Substance: TEMOZOLOMIDE
     Indication: COLORECTAL CANCER
     Dosage: FROM DAY 14 OF CAPECITABINE FOR 5 DAYS
     Route: 048
     Dates: start: 20180713, end: 20180825
  3. AMLODIPINE [Concomitant]
     Active Substance: AMLODIPINE BESYLATE
     Indication: HYPERTENSION
     Dosage: 2.5 MILLIGRAM, BID
     Route: 065
     Dates: start: 20180703
  4. CARVEDILOLO [Concomitant]
     Active Substance: CARVEDILOL
     Indication: HYPERTENSION
     Dosage: 2.5 MILLIGRAM, BID
     Route: 065
     Dates: start: 201711
  5. RAMIPRIL. [Concomitant]
     Active Substance: RAMIPRIL
     Indication: HYPERTENSION
     Dosage: 5 MILLIGRAM, BID
     Route: 065
     Dates: start: 201711

REACTIONS (2)
  - Pleural effusion [Not Recovered/Not Resolved]
  - Dyspnoea [Not Recovered/Not Resolved]

NARRATIVE: CASE EVENT DATE: 20180825
